FAERS Safety Report 5228916-7 (Version None)
Quarter: 2007Q1

REPORT INFORMATION
  Report Type: 
  Country: None (occurrence: None)
  Receive Date: 20070205
  Receipt Date: 20070126
  Transmission Date: 20070707
  Serious: Yes (Death)
  Sender: FDA-Public Use
  Company Number: IT-SANOFI-SYNTHELABO-A06200600251

PATIENT
  Sex: Male

DRUGS (7)
  1. NAVOBAN [Concomitant]
     Indication: PREMEDICATION
     Route: 065
     Dates: start: 20060710, end: 20060710
  2. RANIDIL [Concomitant]
     Indication: PREMEDICATION
     Route: 065
     Dates: start: 20060710, end: 20060710
  3. DEXAMETHASONE [Concomitant]
     Indication: PREMEDICATION
     Route: 065
     Dates: start: 20060710, end: 20060710
  4. ELOXATIN [Suspect]
     Indication: COLON CANCER
     Route: 041
     Dates: start: 20060710, end: 20060710
  5. NORVASC [Concomitant]
     Indication: HYPERTENSION
     Route: 048
  6. CARDURA [Concomitant]
     Indication: HYPERTENSION
     Route: 048
  7. EUTIROX [Concomitant]
     Indication: THYROIDECTOMY
     Route: 048
     Dates: start: 20040101

REACTIONS (4)
  - GINGIVAL BLEEDING [None]
  - HAEMATURIA [None]
  - MULTI-ORGAN FAILURE [None]
  - THROMBOCYTOPENIA [None]
